FAERS Safety Report 4910742-7 (Version None)
Quarter: 2006Q1

REPORT INFORMATION
  Report Type: 
  Country: None (occurrence: None)
  Receive Date: 20060209
  Receipt Date: 20060209
  Transmission Date: 20060701
  Serious: Yes (Death, Hospitalization)
  Sender: FDA-Public Use
  Company Number: None

PATIENT
  Sex: Female
  Weight: 17 kg

DRUGS (5)
  1. CYTARABINE [Suspect]
     Indication: PRECURSOR B-LYMPHOBLASTIC LYMPHOMA
     Dosage: 70 MG
     Dates: start: 20060110, end: 20060110
  2. DEXAMETHASONE SODIUM PHOSPHATE [Suspect]
     Dosage: 121.5 MG
     Dates: start: 20060111, end: 20060206
  3. METHOTREXATE [Suspect]
     Dosage: 12 MG
     Dates: start: 20060118, end: 20060118
  4. PEG-L  (ASPARAGINASE K-H) [Suspect]
     Dosage: 1830 UNIT
     Dates: start: 20060113, end: 20060113
  5. VINCRISTINE SULFATE [Suspect]
     Dosage: 4.4 MG
     Dates: start: 20060111, end: 20060201

REACTIONS (17)
  - ABDOMINAL PAIN [None]
  - ARTHRALGIA [None]
  - BACK PAIN [None]
  - BACTERIAL INFECTION [None]
  - BLOOD CULTURE POSITIVE [None]
  - CARDIAC ARREST [None]
  - CIRCULATORY COLLAPSE [None]
  - DYSPNOEA [None]
  - FAECES DISCOLOURED [None]
  - FATIGUE [None]
  - GENERAL PHYSICAL HEALTH DETERIORATION [None]
  - GRUNTING [None]
  - PNEUMONIA [None]
  - PYREXIA [None]
  - SEPTIC SHOCK [None]
  - SLEEP DISORDER [None]
  - TACHYPNOEA [None]
